FAERS Safety Report 5426442-3 (Version None)
Quarter: 2007Q3

REPORT INFORMATION
  Report Type: 
  Country: None (occurrence: None)
  Receive Date: 20070827
  Receipt Date: 20070815
  Transmission Date: 20080115
  Serious: Yes (Hospitalization, Other)
  Sender: FDA-Public Use
  Company Number: AR-PFIZER INC-2007001321

PATIENT
  Sex: Male

DRUGS (2)
  1. SUTENT [Suspect]
     Indication: RENAL CELL CARCINOMA STAGE UNSPECIFIED
     Dosage: DAILY DOSE:50MG
     Route: 048
  2. ANTIOXIDANTS [Concomitant]

REACTIONS (8)
  - ABDOMINAL PAIN UPPER [None]
  - AGEUSIA [None]
  - BLISTER [None]
  - DYSPHONIA [None]
  - LIVER FUNCTION TEST ABNORMAL [None]
  - RED BLOOD CELL COUNT DECREASED [None]
  - VOMITING [None]
  - WHITE BLOOD CELL COUNT DECREASED [None]
